FAERS Safety Report 16423309 (Version 1)
Quarter: 2019Q2

REPORT INFORMATION
  Report Type: Spontaneous
  Country: CA (occurrence: CA)
  Receive Date: 20190612
  Receipt Date: 20190612
  Transmission Date: 20190711
  Serious: Yes (Other)
  Sender: FDA-Public Use
  Company Number: CA-009507513-1906CAN002919

PATIENT
  Sex: Female

DRUGS (1)
  1. NUVARING [Suspect]
     Active Substance: ETHINYL ESTRADIOL\ETONOGESTREL
     Route: 067

REACTIONS (6)
  - Bacterial vaginosis [Unknown]
  - Trichomoniasis [Unknown]
  - Chlamydial infection [Unknown]
  - Gonorrhoea [Unknown]
  - Fungal infection [Unknown]
  - Sexually transmitted disease [Unknown]
